FAERS Safety Report 6750528-4 (Version None)
Quarter: 2010Q2

REPORT INFORMATION
  Report Type: 
  Country: None (occurrence: None)
  Receive Date: 20100528
  Receipt Date: 20100528
  Transmission Date: 20101027
  Serious: Yes (Hospitalization, Other)
  Sender: FDA-Public Use
  Company Number: None

PATIENT
  Sex: Female
  Weight: 92.5338 kg

DRUGS (2)
  1. FENTANYL [Suspect]
     Indication: INTERVERTEBRAL DISC DISORDER
     Dosage: FENTANYL 100MCG/H Q 72 H TRANSDERMAL FENTANYL 50MCG/H Q 72 H TRANSDERMAL
     Route: 062
     Dates: start: 20100502
  2. FENTANYL [Suspect]
     Indication: INTERVERTEBRAL DISC DISORDER
     Dosage: FENTANYL 100MCG/H Q 72 H TRANSDERMAL FENTANYL 50MCG/H Q 72 H TRANSDERMAL
     Route: 062
     Dates: start: 20100504

REACTIONS (2)
  - CONVULSION [None]
  - LOSS OF CONSCIOUSNESS [None]
